FAERS Safety Report 18416495 (Version 4)
Quarter: 2021Q1

REPORT INFORMATION
  Report Type: Report from Study
  Country: None (occurrence: JP)
  Receive Date: 20201022
  Receipt Date: 20210225
  Transmission Date: 20210419
  Serious: Yes (Death, Hospitalization, Other)
  Sender: FDA-Public Use
  Company Number: JP-ABBVIE-20P-087-3614825-00

PATIENT
  Age: 81 Year
  Sex: Male
  Weight: 34.4 kg

DRUGS (57)
  1. VENETOCLAX. [Suspect]
     Active Substance: VENETOCLAX
     Indication: ACUTE MYELOID LEUKAEMIA
     Route: 048
     Dates: start: 20180822, end: 20180822
  2. BIO?THREE [Concomitant]
     Active Substance: HERBALS
     Indication: GASTROINTESTINAL MOTILITY DISORDER
     Route: 048
     Dates: start: 20180726
  3. ACRINOL [Concomitant]
     Indication: INFUSION SITE EXTRAVASATION
     Dosage: ONE TIME
     Route: 061
     Dates: start: 20190916
  4. AMIKACIN SULFATE. [Concomitant]
     Active Substance: AMIKACIN SULFATE
     Route: 042
     Dates: start: 20181108, end: 20181122
  5. AMIKACIN SULFATE. [Concomitant]
     Active Substance: AMIKACIN SULFATE
     Route: 042
     Dates: start: 20190105, end: 20190117
  6. ACETAMINOPHEN. [Concomitant]
     Active Substance: ACETAMINOPHEN
     Route: 048
     Dates: start: 20181017, end: 20181019
  7. ACETAMINOPHEN. [Concomitant]
     Active Substance: ACETAMINOPHEN
     Route: 048
     Dates: start: 20190301, end: 20190307
  8. MEROPENEM TRIHYDRATE [Concomitant]
     Active Substance: MEROPENEM
     Indication: FEBRILE NEUTROPENIA
     Route: 042
     Dates: start: 20200705
  9. LENOGRASTIM [Concomitant]
     Active Substance: LENOGRASTIM
     Indication: FEBRILE NEUTROPENIA
     Route: 058
     Dates: start: 20200704
  10. VENETOCLAX. [Suspect]
     Active Substance: VENETOCLAX
     Route: 048
     Dates: start: 20180823, end: 20180823
  11. FEBUXOSTAT. [Concomitant]
     Active Substance: FEBUXOSTAT
     Indication: PROPHYLAXIS
     Route: 048
     Dates: start: 20190614, end: 20191205
  12. AMIKACIN SULFATE. [Concomitant]
     Active Substance: AMIKACIN SULFATE
     Route: 042
     Dates: start: 20190912, end: 20190912
  13. ACETAMINOPHEN. [Concomitant]
     Active Substance: ACETAMINOPHEN
     Route: 042
     Dates: start: 20200203, end: 20200211
  14. ACETAMINOPHEN. [Concomitant]
     Active Substance: ACETAMINOPHEN
     Route: 048
     Dates: start: 20200203, end: 20200203
  15. MEROPENEM TRIHYDRATE [Concomitant]
     Active Substance: MEROPENEM
     Route: 042
     Dates: start: 20181113, end: 20181122
  16. MEROPENEM TRIHYDRATE [Concomitant]
     Active Substance: MEROPENEM
     Route: 042
     Dates: start: 20190306, end: 20190314
  17. BFLUID [Concomitant]
     Active Substance: AMINO ACIDS\DEXTROSE\ELECTROLYTES NOS\VITAMINS
     Indication: PROPHYLAXIS
     Route: 042
     Dates: start: 20180821, end: 20180826
  18. AZACITIDINE. [Suspect]
     Active Substance: AZACITIDINE
     Indication: ACUTE MYELOID LEUKAEMIA
     Dosage: DAYS 1?7 OF 28 DAY CYCLE
     Route: 058
     Dates: start: 20180822, end: 20201004
  19. LIDOCAINE. [Concomitant]
     Active Substance: LIDOCAINE
     Indication: ORAL PAIN
     Dosage: GARGLE
     Dates: start: 20190311
  20. MEROPENEM TRIHYDRATE [Concomitant]
     Active Substance: MEROPENEM
     Route: 042
     Dates: start: 20181113, end: 20181113
  21. MEROPENEM TRIHYDRATE [Concomitant]
     Active Substance: MEROPENEM
     Route: 042
     Dates: start: 20200704, end: 20200704
  22. VONOPRAZAN FUMARATE [Concomitant]
     Active Substance: VONOPRAZAN FUMARATE
     Indication: GASTRODUODENAL ULCER
     Route: 048
     Dates: start: 20180831, end: 20181130
  23. LOXOPROFEN SODIUM [Concomitant]
     Active Substance: LOXOPROFEN SODIUM
     Indication: LIGAMENT SPRAIN
     Dosage: 3 SHEETS
     Route: 061
     Dates: start: 20190304
  24. FEBUXOSTAT. [Concomitant]
     Active Substance: FEBUXOSTAT
     Indication: PROPHYLAXIS
     Route: 048
     Dates: start: 20180727
  25. AMIKACIN SULFATE. [Concomitant]
     Active Substance: AMIKACIN SULFATE
     Indication: FEBRILE NEUTROPENIA
     Route: 042
     Dates: start: 20200702
  26. AMIKACIN SULFATE. [Concomitant]
     Active Substance: AMIKACIN SULFATE
     Indication: PNEUMONIA
     Route: 042
     Dates: start: 20201006, end: 20201020
  27. ACETAMINOPHEN. [Concomitant]
     Active Substance: ACETAMINOPHEN
     Route: 042
     Dates: start: 20191022, end: 20191022
  28. POLYMYXIN B SULFATE. [Concomitant]
     Active Substance: POLYMYXIN B SULFATE
     Indication: INFECTION PROPHYLAXIS
     Route: 048
     Dates: start: 20180726
  29. LOXOPROFEN SODIUM [Concomitant]
     Active Substance: LOXOPROFEN SODIUM
     Indication: ARTHRALGIA
     Dosage: 1 SHEETS
     Route: 061
     Dates: start: 20190626, end: 20190712
  30. FEBUXOSTAT. [Concomitant]
     Active Substance: FEBUXOSTAT
     Indication: PROPHYLAXIS
     Route: 048
     Dates: start: 20180727, end: 20190613
  31. AMIKACIN SULFATE. [Concomitant]
     Active Substance: AMIKACIN SULFATE
     Route: 042
     Dates: start: 20190301, end: 20190314
  32. ACETAMINOPHEN. [Concomitant]
     Active Substance: ACETAMINOPHEN
     Indication: CLOSTRIDIUM DIFFICILE INFECTION
     Route: 048
     Dates: start: 20190502, end: 20190505
  33. MEROPENEM TRIHYDRATE [Concomitant]
     Active Substance: MEROPENEM
     Indication: PNEUMONIA
     Route: 042
     Dates: start: 20201010, end: 20201010
  34. MEROPENEM TRIHYDRATE [Concomitant]
     Active Substance: MEROPENEM
     Route: 042
     Dates: start: 20191022, end: 20191022
  35. MEROPENEM TRIHYDRATE [Concomitant]
     Active Substance: MEROPENEM
     Route: 042
     Dates: start: 20191023, end: 20191029
  36. MIKELUNA COMBINATION OPHTHALMIC SOLUTION [Concomitant]
     Active Substance: CARTEOLOL HYDROCHLORIDE\LATANOPROST
     Indication: GLAUCOMA
     Route: 047
     Dates: start: 2013
  37. PURIFIED SODIUM HYALURONATE [Concomitant]
     Indication: DRY EYE
     Route: 047
     Dates: start: 2013
  38. WHITE VASELIN [Concomitant]
     Indication: CHAPPED LIPS
     Dosage: 3 TIMES
     Route: 061
     Dates: start: 20180804
  39. FOLIC ACID. [Concomitant]
     Active Substance: FOLIC ACID
     Indication: ANAEMIA FOLATE DEFICIENCY
     Route: 048
     Dates: start: 20190313
  40. RAMELTEON [Concomitant]
     Active Substance: RAMELTEON
     Indication: INSOMNIA
     Route: 048
     Dates: start: 20190727
  41. AMIKACIN SULFATE. [Concomitant]
     Active Substance: AMIKACIN SULFATE
     Indication: INFECTION PROPHYLAXIS
     Route: 042
     Dates: start: 20181017, end: 20181023
  42. ACETAMINOPHEN. [Concomitant]
     Active Substance: ACETAMINOPHEN
     Route: 048
     Dates: start: 20190105, end: 20190108
  43. CEFEPIME DIHYDROCHLORIDE [Concomitant]
     Active Substance: CEFEPIME HYDROCHLORIDE
     Indication: PNEUMONIA
     Route: 042
     Dates: start: 20201005, end: 20201010
  44. VENETOCLAX. [Suspect]
     Active Substance: VENETOCLAX
     Route: 048
     Dates: start: 20180824, end: 20201015
  45. VONOPRAZAN FUMARATE [Concomitant]
     Active Substance: VONOPRAZAN FUMARATE
     Indication: ABDOMINAL PAIN UPPER
     Route: 048
     Dates: start: 20181201
  46. LOXOPROFEN SODIUM [Concomitant]
     Active Substance: LOXOPROFEN SODIUM
     Indication: LIGAMENT SPRAIN
     Dosage: 1 SHEETS
     Route: 061
     Dates: start: 20190105, end: 20190122
  47. SODIUM AZULENE SULFONATE [Concomitant]
     Active Substance: SODIUM GUALENATE
     Indication: INFECTION PROPHYLAXIS
     Dosage: GARGLE
     Dates: start: 20190307
  48. AMIKACIN SULFATE. [Concomitant]
     Active Substance: AMIKACIN SULFATE
     Route: 042
     Dates: start: 20190502, end: 20190513
  49. AMIKACIN SULFATE. [Concomitant]
     Active Substance: AMIKACIN SULFATE
     Route: 042
     Dates: start: 20190913, end: 20191001
  50. ACETAMINOPHEN. [Concomitant]
     Active Substance: ACETAMINOPHEN
     Indication: FEBRILE NEUTROPENIA
     Route: 048
     Dates: start: 20200702
  51. ACETAMINOPHEN. [Concomitant]
     Active Substance: ACETAMINOPHEN
     Route: 042
     Dates: start: 20200414, end: 20200421
  52. MEROPENEM TRIHYDRATE [Concomitant]
     Active Substance: MEROPENEM
     Route: 042
     Dates: start: 20190506, end: 20190506
  53. ACETAMINOPHEN. [Concomitant]
     Active Substance: ACETAMINOPHEN
     Indication: PYREXIA
     Route: 048
     Dates: start: 20190912, end: 20190926
  54. ACETAMINOPHEN. [Concomitant]
     Active Substance: ACETAMINOPHEN
     Route: 042
     Dates: start: 20191023, end: 20191029
  55. MEROPENEM TRIHYDRATE [Concomitant]
     Active Substance: MEROPENEM
     Indication: STAPHYLOCOCCAL INFECTION
     Route: 042
     Dates: start: 20201011, end: 20201020
  56. MEROPENEM TRIHYDRATE [Concomitant]
     Active Substance: MEROPENEM
     Route: 042
     Dates: start: 20190507, end: 20190513
  57. MEROPENEM TRIHYDRATE [Concomitant]
     Active Substance: MEROPENEM
     Route: 042
     Dates: start: 20190305, end: 20190305

REACTIONS (2)
  - Pneumonia [Recovered/Resolved]
  - Pneumonia [Fatal]

NARRATIVE: CASE EVENT DATE: 20201016
